FAERS Safety Report 8214043-3 (Version None)
Quarter: 2012Q1

REPORT INFORMATION
  Report Type: 
  Country: None (occurrence: None)
  Receive Date: 20120314
  Receipt Date: 20120314
  Transmission Date: 20120608
  Serious: Yes (Hospitalization, Other)
  Sender: FDA-Public Use
  Company Number: None

PATIENT
  Sex: Male
  Weight: 106 kg

DRUGS (3)
  1. LITHIUM CARBONATE [Suspect]
  2. HALDOL [Suspect]
  3. THORAZINE [Suspect]

REACTIONS (2)
  - FALL [None]
  - WEIGHT DECREASED [None]
